FAERS Safety Report 4861217-5 (Version None)
Quarter: 2005Q4

REPORT INFORMATION
  Report Type: 
  Country: None (occurrence: None)
  Receive Date: 20051220
  Receipt Date: 20051024
  Transmission Date: 20060501
  Serious: Yes (Death, Hospitalization)
  Sender: FDA-Public Use
  Company Number: FR-AMGEN-UK155483

PATIENT
  Sex: Female

DRUGS (13)
  1. DARBEPOETIN ALFA [Suspect]
     Indication: DIALYSIS
     Route: 042
     Dates: start: 20050524, end: 20051011
  2. SINTROM [Suspect]
     Route: 065
     Dates: start: 20030506
  3. MIXTARD HUMAN 70/30 [Concomitant]
     Route: 065
     Dates: start: 20050928
  4. VITAMIN D [Concomitant]
     Route: 065
     Dates: start: 20050614
  5. RENAGEL [Concomitant]
     Route: 065
     Dates: start: 20050614
  6. ATORVASTATIN [Concomitant]
     Route: 065
     Dates: start: 20050614
  7. CALCIUM CARBONATE [Concomitant]
     Route: 065
     Dates: start: 20050614
  8. KAYEXALATE [Concomitant]
     Route: 065
     Dates: start: 20050929
  9. MOPRAL [Concomitant]
     Route: 065
     Dates: start: 20050614
  10. TRIATEC [Concomitant]
     Route: 065
     Dates: start: 20050614
  11. CORDARONE [Concomitant]
     Route: 065
     Dates: start: 20050614
  12. HEPARIN [Concomitant]
     Route: 042
     Dates: start: 20050331
  13. VENOFER [Concomitant]
     Route: 065
     Dates: start: 20050317

REACTIONS (6)
  - CYANOSIS [None]
  - DYSPNOEA [None]
  - FEMORAL PULSE ABNORMAL [None]
  - PERIPHERAL ISCHAEMIA [None]
  - PROTHROMBIN TIME PROLONGED [None]
  - THROMBOSIS [None]
